FAERS Safety Report 7313930-8 (Version None)
Quarter: 2011Q1

REPORT INFORMATION
  Report Type: 
  Country: None (occurrence: None)
  Receive Date: 20110225
  Receipt Date: 20110216
  Transmission Date: 20110831
  Serious: Yes (Hospitalization)
  Sender: FDA-Public Use
  Company Number: US-AMGEN-USASP2011009514

PATIENT
  Age: 62 Year
  Sex: Female

DRUGS (1)
  1. ENBREL [Suspect]
     Indication: RHEUMATOID ARTHRITIS
     Dosage: 50 MG, QWK
     Dates: start: 20090601, end: 20100901

REACTIONS (7)
  - HAEMATOMA [None]
  - ARTERIAL RUPTURE [None]
  - INJECTION SITE HAEMATOMA [None]
  - DRAIN REMOVAL [None]
  - PNEUMONIA [None]
  - DYSPNOEA [None]
  - LACERATION [None]
